FAERS Safety Report 5196527-8 (Version None)
Quarter: 2006Q4

REPORT INFORMATION
  Report Type: 
  Country: None (occurrence: None)
  Receive Date: 20061227
  Receipt Date: 20061218
  Transmission Date: 20070319
  Serious: Yes (Life-Threatening, Hospitalization)
  Sender: FDA-Public Use
  Company Number: 2006-06082

PATIENT
  Age: 28 Year
  Sex: Female

DRUGS (3)
  1. TRELSTAR DEPOT [Suspect]
     Indication: IN VITRO FERTILISATION
     Dosage: 1.5 MG (1.5MG, 1 IN 28 D), INTRAMUSCULAR
     Route: 030
     Dates: start: 20000601, end: 20000601
  2. GONAL-F [Suspect]
     Indication: IN VITRO FERTILISATION
     Dosage: 150 IU, (75 IU, 1 IN 1 D), SUBCUTANEOUS; 225 IU, (75 IU, 1 IN 1 D)
     Route: 058
     Dates: start: 20000614, end: 20000618
  3. GONAL-F [Suspect]
     Indication: IN VITRO FERTILISATION
     Dosage: 150 IU, (75 IU, 1 IN 1 D), SUBCUTANEOUS; 225 IU, (75 IU, 1 IN 1 D)
     Route: 058
     Dates: start: 20000619, end: 20000622

REACTIONS (5)
  - CHEST PAIN [None]
  - DYSPNOEA [None]
  - OVARIAN HYPERSTIMULATION SYNDROME [None]
  - PLEURAL EFFUSION [None]
  - TACHYCARDIA [None]
